FAERS Safety Report 6045084-2 (Version None)
Quarter: 2009Q1

REPORT INFORMATION
  Report Type: 
  Country: None (occurrence: None)
  Receive Date: 20090116
  Receipt Date: 20090116
  Transmission Date: 20090719
  Serious: Yes (Hospitalization)
  Sender: FDA-Public Use
  Company Number: None

PATIENT
  Sex: Female
  Weight: 50 kg

DRUGS (2)
  1. FLUOROURACIL [Suspect]
     Dosage: 14904 MG
  2. LEUCOVORIN CALCIUM [Suspect]
     Dosage: 144 MG

REACTIONS (10)
  - DEHYDRATION [None]
  - DYSPHAGIA [None]
  - FLUID INTAKE REDUCED [None]
  - HYPOPHAGIA [None]
  - HYPOTENSION [None]
  - MUCOSAL INFLAMMATION [None]
  - NAUSEA [None]
  - ODYNOPHAGIA [None]
  - VOMITING [None]
  - WEIGHT DECREASED [None]
